FAERS Safety Report 4304319-4 (Version None)
Quarter: 2004Q1

REPORT INFORMATION
  Report Type: 
  Country: None (occurrence: None)
  Receive Date: 20040224
  Receipt Date: 20040211
  Transmission Date: 20041129
  Serious: Yes (Other)
  Sender: FDA-Public Use
  Company Number: US-JNJFOC-20040203727

PATIENT
  Age: 53 Year
  Sex: Female
  Weight: 46.2669 kg

DRUGS (6)
  1. INFLIXIMAB (INFLIXIMAB, RECOMBINANT) LYOPHILIZED POWDER [Suspect]
     Indication: CROHN'S DISEASE
     Dosage: 5 MG/KG INTRAVENOUS
     Route: 042
     Dates: start: 20020715
  2. INFLIXIMAB (INFLIXIMAB, RECOMBINANT) LYOPHILIZED POWDER [Suspect]
     Indication: CROHN'S DISEASE
     Dosage: 5 MG/KG INTRAVENOUS
     Route: 042
     Dates: start: 20020902
  3. AZATHIOPRINE [Concomitant]
  4. PREDNISONE [Concomitant]
  5. NARCOTIC ANALGESICS (ANALGESICS) [Concomitant]
  6. ANTIDEPRESSANTS (ANTIDEPRESSANTS) [Concomitant]

REACTIONS (1)
  - UNEVALUABLE EVENT [None]
